FAERS Safety Report 15154957 (Version 4)
Quarter: 2019Q3

REPORT INFORMATION
  Report Type: Spontaneous
  Country: US (occurrence: US)
  Receive Date: 20180717
  Receipt Date: 20190829
  Transmission Date: 20191004
  Serious: Yes (Other)
  Sender: FDA-Public Use
  Company Number: US-PFIZER INC-2018199264

PATIENT
  Age: 12 Year
  Sex: Female
  Weight: 45.35 kg

DRUGS (3)
  1. GENOTROPIN MQ [Suspect]
     Active Substance: SOMATROPIN
     Dosage: 2 MG, DAILY
  2. GENOTROPIN MQ [Suspect]
     Active Substance: SOMATROPIN
     Indication: TURNER^S SYNDROME
     Dosage: 1.8 MG, DAILY (7 DAYS/WK)
     Dates: start: 200804
  3. GENOTROPIN MQ [Suspect]
     Active Substance: SOMATROPIN
     Dosage: 1.8 MG, DAILY
     Dates: start: 200805

REACTIONS (3)
  - Gonadal dysgenesis [Unknown]
  - Aortic valve disease [Unknown]
  - Ovarian failure [Unknown]
